FAERS Safety Report 8418077-5 (Version None)
Quarter: 2012Q2

REPORT INFORMATION
  Report Type: 
  Country: None (occurrence: None)
  Receive Date: 20120607
  Receipt Date: 20120531
  Transmission Date: 20120825
  Serious: Yes (Death, Other)
  Sender: FDA-Public Use
  Company Number: JP-JNJFOC-20120518347

PATIENT
  Age: 51 Year
  Sex: Male
  Weight: 57.7 kg

DRUGS (7)
  1. METHYLPREDNISOLONE [Suspect]
     Indication: B-CELL LYMPHOMA
     Dosage: BEFORE CHOP THERAPY
     Route: 065
  2. ALLOPURINOL [Suspect]
     Indication: TUMOUR LYSIS SYNDROME
     Route: 065
  3. ALLOPURINOL [Suspect]
     Route: 065
  4. VINCRISTINE [Suspect]
     Indication: B-CELL LYMPHOMA
     Route: 065
  5. DOXORUBICIN HCL [Suspect]
     Indication: B-CELL LYMPHOMA
     Route: 042
  6. CYCLOPHOSPHAMIDE [Suspect]
     Indication: B-CELL LYMPHOMA
     Route: 065
  7. METHYLPREDNISOLONE [Suspect]
     Dosage: AS A PART OF CHOP THERAPY
     Route: 065

REACTIONS (3)
  - TUMOUR LYSIS SYNDROME [None]
  - GASTROINTESTINAL HAEMORRHAGE [None]
  - DISSEMINATED INTRAVASCULAR COAGULATION [None]
